FAERS Safety Report 13970254 (Version 9)
Quarter: 2021Q2

REPORT INFORMATION
  Report Type: Report from Study
  Country: JP (occurrence: JP)
  Receive Date: 20170914
  Receipt Date: 20210520
  Transmission Date: 20210716
  Serious: Yes (Life-Threatening)
  Sender: FDA-Public Use
  Company Number: JP-PFIZER INC-2017394920

PATIENT
  Age: 54 Year
  Sex: Female
  Weight: 45 kg

DRUGS (9)
  1. XELJANZ [Suspect]
     Active Substance: TOFACITINIB CITRATE
     Indication: RHEUMATOID ARTHRITIS
     Dosage: 5 MG, 2X/DAY
     Route: 048
     Dates: start: 20160301, end: 20160711
  2. XELJANZ [Suspect]
     Active Substance: TOFACITINIB CITRATE
     Dosage: 5 MG, 2X/DAY
     Route: 048
     Dates: start: 20160719, end: 20170905
  3. RHEUMATREX [Suspect]
     Active Substance: METHOTREXATE SODIUM
     Dosage: 8 MG, WEEKLY (THREE DIVIDED)
     Route: 048
     Dates: start: 20160301, end: 20170905
  4. PREDONINE [Concomitant]
     Active Substance: PREDNISOLONE
     Dosage: 10 MG, DAILY
     Route: 048
     Dates: start: 20170606, end: 20180320
  5. RHEUMATREX [Suspect]
     Active Substance: METHOTREXATE SODIUM
     Dosage: 10 MG, WEEKLY (THREE DIVIDED)
     Route: 048
     Dates: start: 20121025, end: 20130724
  6. AZULFIDINE EN?TABS [Suspect]
     Active Substance: SULFASALAZINE
     Indication: RHEUMATOID ARTHRITIS
     Dosage: UNK
  7. PREDONINE [Concomitant]
     Active Substance: PREDNISOLONE
     Indication: RHEUMATOID ARTHRITIS
     Dosage: 7.5 MG, DAILY
     Route: 048
     Dates: end: 20170605
  8. RHEUMATREX [Suspect]
     Active Substance: METHOTREXATE SODIUM
     Indication: RHEUMATOID ARTHRITIS
     Dosage: 8 MG, WEEKLY (THREE DIVIDED)
     Route: 048
     Dates: start: 20080618, end: 20121024
  9. RHEUMATREX [Suspect]
     Active Substance: METHOTREXATE SODIUM
     Dosage: 12 MG, WEEKLY (THREE DIVIDED)
     Route: 048
     Dates: start: 20130725, end: 20160229

REACTIONS (3)
  - Hodgkin^s disease [Recovering/Resolving]
  - Lymphoproliferative disorder [Recovering/Resolving]
  - Lymphocyte count decreased [Recovering/Resolving]

NARRATIVE: CASE EVENT DATE: 20170418
